FAERS Safety Report 21481163 (Version 1)
Quarter: 2022Q4

REPORT INFORMATION
  Report Type: Spontaneous
  Country: US (occurrence: None)
  Receive Date: 20221019
  Receipt Date: 20221019
  Transmission Date: 20230113
  Serious: Yes (Hospitalization)
  Sender: FDA-Public Use
  Company Number: None

PATIENT
  Age: 82 Year
  Sex: Male
  Weight: 104.1 kg

DRUGS (1)
  1. ARIMIDEX [Suspect]
     Active Substance: ANASTROZOLE
     Dates: end: 20210601

REACTIONS (9)
  - Embolism [None]
  - Anaemia [None]
  - Fall [None]
  - Femur fracture [None]
  - Breast cancer metastatic [None]
  - Metastases to bone [None]
  - Arthralgia [None]
  - Pulmonary embolism [None]
  - Red blood cell transfusion [None]

NARRATIVE: CASE EVENT DATE: 20210601
